FAERS Safety Report 6689165-9 (Version None)
Quarter: 2010Q2

REPORT INFORMATION
  Report Type: 
  Country: None (occurrence: None)
  Receive Date: 20100420
  Receipt Date: 20100415
  Transmission Date: 20101027
  Serious: Yes (Hospitalization)
  Sender: FDA-Public Use
  Company Number: US-GILEAD-2010-0028570

PATIENT
  Sex: Male

DRUGS (6)
  1. LETAIRIS [Suspect]
     Indication: PULMONARY ARTERIAL HYPERTENSION
     Route: 048
     Dates: start: 20100130
  2. COUMADIN [Concomitant]
  3. FUROSEMIDE [Concomitant]
  4. CLONIDINE [Concomitant]
  5. GLYCOPYRROLATE [Concomitant]
  6. ORACEA [Concomitant]

REACTIONS (1)
  - RESPIRATORY DEPRESSION [None]
